FAERS Safety Report 26179515 (Version 1)
Quarter: 2025Q4

REPORT INFORMATION
  Report Type: Spontaneous
  Country: US (occurrence: US)
  Receive Date: 20251219
  Receipt Date: 20251219
  Transmission Date: 20260118
  Serious: Yes (Other)
  Sender: MYLAN
  Company Number: US-MYLANLABS-2025M1106850

PATIENT
  Age: 67 Year
  Sex: Female

DRUGS (24)
  1. METHIMAZOLE [Suspect]
     Active Substance: METHIMAZOLE
     Indication: Immune-mediated thyroiditis
     Dosage: 25 MILLIGRAM
  2. METHIMAZOLE [Suspect]
     Active Substance: METHIMAZOLE
     Dosage: 25 MILLIGRAM
  3. METHIMAZOLE [Suspect]
     Active Substance: METHIMAZOLE
     Dosage: 25 MILLIGRAM
     Route: 065
  4. METHIMAZOLE [Suspect]
     Active Substance: METHIMAZOLE
     Dosage: 25 MILLIGRAM
     Route: 065
  5. METHIMAZOLE [Suspect]
     Active Substance: METHIMAZOLE
     Dosage: 30 MILLIGRAM
  6. METHIMAZOLE [Suspect]
     Active Substance: METHIMAZOLE
     Dosage: 30 MILLIGRAM
  7. METHIMAZOLE [Suspect]
     Active Substance: METHIMAZOLE
     Dosage: 30 MILLIGRAM
     Route: 065
  8. METHIMAZOLE [Suspect]
     Active Substance: METHIMAZOLE
     Dosage: 30 MILLIGRAM
     Route: 065
  9. HYDROCORTISONE [Suspect]
     Active Substance: HYDROCORTISONE
     Indication: Immune-mediated thyroiditis
     Dosage: UNK
  10. HYDROCORTISONE [Suspect]
     Active Substance: HYDROCORTISONE
     Dosage: UNK
     Route: 065
  11. HYDROCORTISONE [Suspect]
     Active Substance: HYDROCORTISONE
     Dosage: UNK
     Route: 065
  12. HYDROCORTISONE [Suspect]
     Active Substance: HYDROCORTISONE
     Dosage: UNK
  13. CARVEDILOL [Suspect]
     Active Substance: CARVEDILOL
     Indication: Immune-mediated thyroiditis
     Dosage: 6.25 MILLIGRAM, BID
  14. CARVEDILOL [Suspect]
     Active Substance: CARVEDILOL
     Indication: Sinus tachycardia
     Dosage: 6.25 MILLIGRAM, BID
     Route: 065
  15. CARVEDILOL [Suspect]
     Active Substance: CARVEDILOL
     Dosage: 6.25 MILLIGRAM, BID
     Route: 065
  16. CARVEDILOL [Suspect]
     Active Substance: CARVEDILOL
     Dosage: 6.25 MILLIGRAM, BID
  17. IPILIMUMAB [Concomitant]
     Active Substance: IPILIMUMAB
     Indication: Clear cell renal cell carcinoma
     Dosage: UNK, 3XW, COMPLETED 3 CYCLES
  18. IPILIMUMAB [Concomitant]
     Active Substance: IPILIMUMAB
     Dosage: UNK, 3XW, COMPLETED 3 CYCLES
     Route: 065
  19. IPILIMUMAB [Concomitant]
     Active Substance: IPILIMUMAB
     Dosage: UNK, 3XW, COMPLETED 3 CYCLES
     Route: 065
  20. IPILIMUMAB [Concomitant]
     Active Substance: IPILIMUMAB
     Dosage: UNK, 3XW, COMPLETED 3 CYCLES
  21. NIVOLUMAB [Concomitant]
     Active Substance: NIVOLUMAB
     Indication: Clear cell renal cell carcinoma
     Dosage: UNK UNK, 3XW, COMPLETED 3 CYCLES
  22. NIVOLUMAB [Concomitant]
     Active Substance: NIVOLUMAB
     Dosage: UNK UNK, 3XW, COMPLETED 3 CYCLES
     Route: 065
  23. NIVOLUMAB [Concomitant]
     Active Substance: NIVOLUMAB
     Dosage: UNK UNK, 3XW, COMPLETED 3 CYCLES
     Route: 065
  24. NIVOLUMAB [Concomitant]
     Active Substance: NIVOLUMAB
     Dosage: UNK UNK, 3XW, COMPLETED 3 CYCLES

REACTIONS (1)
  - Drug ineffective [Unknown]
